FAERS Safety Report 26102326 (Version 1)
Quarter: 2025Q4

REPORT INFORMATION
  Report Type: Spontaneous
  Country: US (occurrence: None)
  Receive Date: 20251128
  Receipt Date: 20251128
  Transmission Date: 20260117
  Serious: No
  Sender: ALEXION PHARMACEUTICALS
  Company Number: US-AstraZeneca-CH-01003503A

PATIENT
  Sex: Male

DRUGS (1)
  1. VOYDEYA [Suspect]
     Active Substance: DANICOPAN
     Route: 065

REACTIONS (1)
  - Bone marrow transplant [Unknown]
